FAERS Safety Report 9845958 (Version 1)
Quarter: 2013Q4

REPORT INFORMATION
  Report Type: Spontaneous
  Country: US (occurrence: None)
  Receive Date: 20131219
  Receipt Date: 20131219
  Transmission Date: 20140711
  Serious: Yes (Death)
  Sender: FDA-Public Use
  Company Number: 163-20785-13042605

PATIENT
  Age: 56 Year
  Sex: Female

DRUGS (22)
  1. THALOMID (THALIDOMIDE) (100 MILLIGRAM, CAPSULES) [Suspect]
     Indication: PLASMA CELL MYELOMA
     Route: 048
     Dates: start: 200910, end: 2009
  2. ACYCLOVIR (ACICLOVIR) (ACICLOVIR) [Concomitant]
  3. AMOXICILLIN [Concomitant]
  4. ANTIOXIDANT (SELETOP-C) [Concomitant]
  5. ARTIFICIAL TEARS [Concomitant]
  6. B COMPLEX (BECOSYM FORTE) [Concomitant]
  7. CHLORHEX GLU SOL (CHLORHEXIDINE) [Concomitant]
  8. CIPRO (CIPROFLOXACIN) [Concomitant]
  9. ERYTHROMYCIN [Concomitant]
  10. GABAPENTIN [Concomitant]
  11. MAGNESIUM [Concomitant]
  12. MULTIVITAMINS [Concomitant]
  13. OMEGA [Concomitant]
  14. ONDANSETRON [Concomitant]
  15. OXYCODONE [Concomitant]
  16. PRILOSEC (OMEPRAZOLE) [Concomitant]
  17. RESTASIS (CICLOSPORIN) [Concomitant]
  18. SENOKOT (SENNA FRUIT) [Concomitant]
  19. TUMS (CALCIUM CARBONATE) [Concomitant]
  20. VITAMIN E (TOCOPHEROL) [Concomitant]
  21. ZOLINZA (VORINOSTAT) [Concomitant]
  22. ZOLPIDEM [Concomitant]

REACTIONS (1)
  - Death [None]
